FAERS Safety Report 25216072 (Version 1)
Quarter: 2025Q2

REPORT INFORMATION
  Report Type: Spontaneous
  Country: IN (occurrence: IN)
  Receive Date: 20250418
  Receipt Date: 20250418
  Transmission Date: 20250716
  Serious: Yes (Death)
  Sender: ROCHE
  Company Number: IN-ROCHE-3554699

PATIENT
  Age: 68 Year
  Sex: Male
  Weight: 70 kg

DRUGS (3)
  1. AVASTIN [Suspect]
     Active Substance: BEVACIZUMAB
     Indication: Product used for unknown indication
     Route: 065
     Dates: start: 20240402
  2. TECENTRIQ [Suspect]
     Active Substance: ATEZOLIZUMAB
     Indication: Product used for unknown indication
     Route: 065
     Dates: start: 20240402
  3. URSODIOL [Concomitant]
     Active Substance: URSODIOL

REACTIONS (9)
  - Neuropathy peripheral [Unknown]
  - Encephalopathy [Unknown]
  - Dysarthria [Unknown]
  - Hypersomnia [Unknown]
  - Blood bilirubin increased [Unknown]
  - Jaundice [Unknown]
  - Asthenia [Unknown]
  - Confusional state [Unknown]
  - Hepatic cancer [Fatal]

NARRATIVE: CASE EVENT DATE: 20240901
